FAERS Safety Report 6915324-3 (Version None)
Quarter: 2010Q3

REPORT INFORMATION
  Report Type: 
  Country: None (occurrence: None)
  Receive Date: 20100806
  Receipt Date: 20100806
  Transmission Date: 20110219
  Serious: Yes (Other)
  Sender: FDA-Public Use
  Company Number: None

PATIENT
  Age: 55 Year
  Sex: Female

DRUGS (4)
  1. SIMVASTATIN [Suspect]
     Indication: HYPERCHOLESTEROLAEMIA
     Dosage: 40MG ONCE A DAY PO
     Route: 048
     Dates: start: 20100706, end: 20100804
  2. VAGIFEM [Concomitant]
  3. PREMARIN [Concomitant]
  4. ALPRAZOLAM [Concomitant]

REACTIONS (1)
  - MYALGIA [None]
